FAERS Safety Report 7482235-7 (Version None)
Quarter: 2011Q2

REPORT INFORMATION
  Report Type: 
  Country: None (occurrence: None)
  Receive Date: 20110516
  Receipt Date: 20110509
  Transmission Date: 20111010
  Serious: No
  Sender: FDA-Public Use
  Company Number: US-PFIZER INC-2011099553

PATIENT
  Sex: Female
  Weight: 58.957 kg

DRUGS (3)
  1. PREMARIN [Suspect]
     Indication: MENORRHAGIA
     Dosage: UNK
     Route: 048
  2. PREMARIN [Suspect]
     Indication: UTERINE DISORDER
  3. ALBUTEROL [Concomitant]
     Indication: ASTHMA
     Dosage: UNK

REACTIONS (2)
  - DYSSTASIA [None]
  - NAUSEA [None]
